FAERS Safety Report 15201432 (Version 1)
Quarter: 2018Q3

REPORT INFORMATION
  Report Type: Spontaneous
  Country: US (occurrence: US)
  Receive Date: 20180627
  Receipt Date: 20180627
  Transmission Date: 20181010
  Serious: Yes (Other)
  Sender: FDA-Public Use
  Company Number: None

PATIENT
  Age: 47 Year
  Sex: Female
  Weight: 89.36 kg

DRUGS (5)
  1. SYSTANE BALANCE EYE DROPS [Concomitant]
  2. OMEGA 3 VITAMINS [Concomitant]
  3. CETIRIZINE [Concomitant]
     Active Substance: CETIRIZINE HYDROCHLORIDE
  4. XIIDRA [Suspect]
     Active Substance: LIFITEGRAST
     Indication: DRY EYE
     Dosage: ?          QUANTITY:1 DF DOSAGE FORM;?
     Route: 047
     Dates: start: 20180101, end: 20180410
  5. TRETINOIN CREAM 0.025% [Concomitant]
     Active Substance: TRETINOIN

REACTIONS (4)
  - Ageusia [None]
  - Dysgeusia [None]
  - Anosmia [None]
  - Eyelid margin crusting [None]

NARRATIVE: CASE EVENT DATE: 20180101
